FAERS Safety Report 5392434-6 (Version None)
Quarter: 2007Q3

REPORT INFORMATION
  Report Type: 
  Country: None (occurrence: None)
  Receive Date: 20070720
  Receipt Date: 20070718
  Transmission Date: 20080115
  Serious: Yes (Hospitalization)
  Sender: FDA-Public Use
  Company Number: D0053791A

PATIENT
  Age: 63 Year
  Sex: Female

DRUGS (2)
  1. QUILONUM RETARD [Suspect]
     Dosage: 450MG PER DAY
     Route: 048
     Dates: start: 20070413, end: 20070704
  2. CYMBALTA [Concomitant]
     Dosage: 60MG TWICE PER DAY
     Route: 048
     Dates: start: 20050101

REACTIONS (10)
  - CERVICAL ROOT PAIN [None]
  - GENERAL PHYSICAL HEALTH DETERIORATION [None]
  - HYPERTONIA [None]
  - HYPOKINESIA [None]
  - MONOPARESIS [None]
  - MUSCULAR WEAKNESS [None]
  - MYELOPATHY [None]
  - PARESIS [None]
  - RADICULOPATHY [None]
  - TREMOR [None]
